FAERS Safety Report 24079990 (Version 1)
Quarter: 2024Q3

REPORT INFORMATION
  Report Type: Spontaneous
  Country: US (occurrence: US)
  Receive Date: 20240711
  Receipt Date: 20240711
  Transmission Date: 20241017
  Serious: No
  Sender: MERCK
  Company Number: US-009507513-2406USA005123

PATIENT
  Sex: Female
  Weight: 72.562 kg

DRUGS (8)
  1. WINREVAIR [Suspect]
     Active Substance: SOTATERCEPT-CSRK
     Indication: Product used for unknown indication
  2. TYVASO [Suspect]
     Active Substance: TREPROSTINIL
     Indication: Pulmonary arterial hypertension
     Dosage: 0.6 MICROGRAM, QID, ROUTE: INHALATION
     Dates: start: 20200717
  3. FLONASE ALLERGY RELIEF [Concomitant]
     Active Substance: FLUTICASONE PROPIONATE
  4. ELIQUIS [Concomitant]
     Active Substance: APIXABAN
  5. ALLEGRA ALLERGY [Concomitant]
     Active Substance: FEXOFENADINE HYDROCHLORIDE
  6. TRELEGY ELLIPTA [Concomitant]
     Active Substance: FLUTICASONE FUROATE\UMECLIDINIUM BROMIDE\VILANTEROL TRIFENATATE
  7. XOLAIR [Concomitant]
     Active Substance: OMALIZUMAB
  8. OXYGEN [Concomitant]
     Active Substance: OXYGEN

REACTIONS (2)
  - Fatigue [Unknown]
  - Dizziness [Unknown]
